FAERS Safety Report 12122331 (Version 1)
Quarter: 2016Q1

REPORT INFORMATION
  Report Type: Report from Study
  Country: AR (occurrence: AR)
  Receive Date: 20160226
  Receipt Date: 20160226
  Transmission Date: 20160526
  Serious: Yes (Hospitalization, Other)
  Sender: FDA-Public Use
  Company Number: PHHY2015AR115733

PATIENT
  Age: 58 Year
  Sex: Female

DRUGS (2)
  1. AFINITOR [Suspect]
     Active Substance: EVEROLIMUS
     Dosage: 10 MG, MONDAYS, WEDNESDAYS AND FRIDAYS
     Route: 065
     Dates: end: 20151211
  2. AFINITOR [Suspect]
     Active Substance: EVEROLIMUS
     Indication: BREAST CANCER
     Dosage: 10 MG, MONDAYS, WEDNESDAYS AND FRIDAYS
     Route: 065
     Dates: start: 20150901, end: 20150916

REACTIONS (7)
  - Aphthous ulcer [Recovered/Resolved]
  - Nail infection [Recovering/Resolving]
  - Hepatic lesion [Not Recovered/Not Resolved]
  - Pain in jaw [Recovering/Resolving]
  - Inappropriate schedule of drug administration [Unknown]
  - Eating disorder [Recovering/Resolving]
  - Malignant neoplasm progression [Not Recovered/Not Resolved]

NARRATIVE: CASE EVENT DATE: 20150901
